FAERS Safety Report 4657664-7 (Version None)
Quarter: 2005Q2

REPORT INFORMATION
  Report Type: 
  Country: None (occurrence: None)
  Receive Date: 20050408
  Receipt Date: 20050208
  Transmission Date: 20051028
  Serious: Yes (Hospitalization)
  Sender: FDA-Public Use
  Company Number: 230485K05USA

PATIENT
  Age: 61 Year
  Sex: Male

DRUGS (1)
  1. REBIF [Suspect]
     Indication: MULTIPLE SCLEROSIS
     Dosage: 44 MCG, 3 IN 1 WEEKS, SUBCUTANEOUS
     Route: 058
     Dates: start: 20040915

REACTIONS (8)
  - BALANCE DISORDER [None]
  - BLOOD GLUCOSE INCREASED [None]
  - CRYING [None]
  - DIFFICULTY IN WALKING [None]
  - MOOD SWINGS [None]
  - MUSCLE SPASMS [None]
  - RECTAL HAEMORRHAGE [None]
  - TREMOR [None]
